FAERS Safety Report 9899080 (Version 2)
Quarter: 2014Q1

REPORT INFORMATION
  Report Type: Spontaneous
  Country: US (occurrence: US)
  Receive Date: 20140214
  Receipt Date: 20140214
  Transmission Date: 20141002
  Serious: No
  Sender: FDA-Public Use
  Company Number: US-GILEAD-2011-0045525

PATIENT
  Age: 79 Year
  Sex: Female
  Weight: 63.64 kg

DRUGS (3)
  1. LETAIRIS [Suspect]
     Indication: PRODUCT USED FOR UNKNOWN INDICATION
     Dosage: 10 MG, UNK
     Route: 048
     Dates: start: 20110729, end: 20111017
  2. TYVASO [Suspect]
     Indication: COR PULMONALE CHRONIC
     Dosage: 216 ?G, UNK
     Dates: start: 20110611
  3. COUMADIN                           /00014802/ [Concomitant]

REACTIONS (2)
  - Respiratory tract congestion [Unknown]
  - Constipation [Recovered/Resolved]
